FAERS Safety Report 9462401 (Version 1)
Quarter: 2013Q3

REPORT INFORMATION
  Report Type: Spontaneous
  Country: US (occurrence: US)
  Receive Date: 20130816
  Receipt Date: 20130816
  Transmission Date: 20140515
  Serious: No
  Sender: FDA-Public Use
  Company Number: US-TEVA-426802USA

PATIENT
  Age: 18 Year
  Sex: Female
  Weight: 64.47 kg

DRUGS (5)
  1. PLAN B ONE-STEP [Suspect]
     Indication: POST COITAL CONTRACEPTION
     Dosage: 1.5 MILLIGRAM DAILY;
     Route: 048
     Dates: start: 20130120, end: 20130120
  2. CLARITIN [Concomitant]
     Indication: HYPERSENSITIVITY
  3. VITAMINS [Concomitant]
     Indication: VITAMIN SUPPLEMENTATION
     Dates: end: 20130810
  4. TYLENOL [Concomitant]
     Indication: HEADACHE
  5. ALBUTEROL [Concomitant]
     Indication: ASTHMA

REACTIONS (2)
  - Feeling hot [Recovered/Resolved]
  - Nausea [Recovered/Resolved]
